FAERS Safety Report 6162661-9 (Version None)
Quarter: 2009Q2

REPORT INFORMATION
  Report Type: 
  Country: None (occurrence: None)
  Receive Date: 20090421
  Receipt Date: 20081017
  Transmission Date: 20091009
  Serious: Yes (Other)
  Sender: FDA-Public Use
  Company Number: US-ASTRAZENECA-2008UW23239

PATIENT
  Age: 79 Year
  Sex: Male

DRUGS (1)
  1. CASODEX [Suspect]
     Route: 048
     Dates: start: 20081001

REACTIONS (2)
  - ANGINA PECTORIS [None]
  - CHEST PAIN [None]
